FAERS Safety Report 7332290-X (Version None)
Quarter: 2011Q1

REPORT INFORMATION
  Report Type: 
  Country: None (occurrence: None)
  Receive Date: 20110304
  Receipt Date: 20110301
  Transmission Date: 20110831
  Serious: Yes (Hospitalization)
  Sender: FDA-Public Use
  Company Number: BR-ABBOTT-10P-020-0664925-00

PATIENT
  Sex: Female
  Weight: 78 kg

DRUGS (6)
  1. MAGISTRAL [Concomitant]
     Indication: PRODUCT USED FOR UNKNOWN INDICATION
     Dates: start: 20100101
  2. METHOTREXATE [Concomitant]
     Indication: PRODUCT USED FOR UNKNOWN INDICATION
     Dates: end: 20100201
  3. LEFLUNOMIDE [Concomitant]
     Indication: PRODUCT USED FOR UNKNOWN INDICATION
     Route: 048
     Dates: start: 20100301
  4. CORUS H [Concomitant]
     Indication: BLOOD PRESSURE MANAGEMENT
     Route: 048
     Dates: start: 20100805
  5. ZETSIM [Concomitant]
     Indication: BLOOD CHOLESTEROL
     Dosage: 1 IN 24 HOURS, 50/12.5
     Route: 048
     Dates: start: 20100805
  6. HUMIRA [Suspect]
     Indication: RHEUMATOID ARTHRITIS
     Route: 058
     Dates: start: 20080818, end: 20100720

REACTIONS (9)
  - SCLERITIS [None]
  - DYSPNOEA [None]
  - FATIGUE [None]
  - RHEUMATOID ARTHRITIS [None]
  - PULMONARY EMBOLISM [None]
  - ARRHYTHMIA [None]
  - DEEP VEIN THROMBOSIS [None]
  - RESPIRATORY FAILURE [None]
  - DRUG ADMINISTRATION ERROR [None]
